FAERS Safety Report 9302370 (Version 3)
Quarter: 2013Q2

REPORT INFORMATION
  Report Type: Spontaneous
  Country: SE (occurrence: None)
  Receive Date: 20130517
  Receipt Date: 20130614
  Transmission Date: 20140414
  Serious: Yes (Hospitalization)
  Sender: FDA-Public Use
  Company Number: SE-1198169

PATIENT
  Age: 79 Year
  Sex: Male

DRUGS (3)
  1. TIMOLOL [Suspect]
     Route: 047
  2. TROMBYL [Concomitant]
  3. AZOPT [Suspect]
     Route: 047

REACTIONS (4)
  - Bradycardia [None]
  - Dizziness [None]
  - Presyncope [None]
  - Cardiac fibrillation [None]
